FAERS Safety Report 5807703-2 (Version None)
Quarter: 2008Q3

REPORT INFORMATION
  Report Type: 
  Country: None (occurrence: None)
  Receive Date: 20080711
  Receipt Date: 20080626
  Transmission Date: 20090109
  Serious: Yes (Other)
  Sender: FDA-Public Use
  Company Number: JP-GENENTECH-260352

PATIENT
  Sex: Male

DRUGS (4)
  1. AVASTIN [Suspect]
     Indication: COLON CANCER
     Dosage: 5 MG/KG, Q2W
     Route: 041
     Dates: start: 20080410, end: 20080424
  2. OXALIPLATIN [Suspect]
     Indication: COLON CANCER
     Dosage: UNK, UNK
     Route: 041
     Dates: end: 20080514
  3. FLUOROURACIL [Suspect]
     Indication: COLON CANCER
     Dosage: UNK, UNK
     Route: 042
     Dates: end: 20080514
  4. ISOVORIN [Suspect]
     Indication: COLON CANCER
     Dosage: UNK, UNK
     Route: 041
     Dates: end: 20080514

REACTIONS (3)
  - FLUSHING [None]
  - HYPERTENSION [None]
  - SHOCK [None]
